FAERS Safety Report 13699044 (Version 1)
Quarter: 2017Q2

REPORT INFORMATION
  Report Type: Spontaneous
  Country: US (occurrence: US)
  Receive Date: 20170628
  Receipt Date: 20170628
  Transmission Date: 20170830
  Serious: Yes (Other)
  Sender: FDA-Public Use
  Company Number: US-SPECTRUM PHARMACEUTICALS, INC.-17-E-US-00094

PATIENT
  Age: 65 Year
  Sex: Male

DRUGS (1)
  1. EVOMELA [Suspect]
     Active Substance: MELPHALAN HYDROCHLORIDE
     Indication: BONE MARROW CONDITIONING REGIMEN
     Dosage: UNK, SINGLE
     Route: 042
     Dates: start: 20161108, end: 20161108

REACTIONS (2)
  - Sepsis [Unknown]
  - Atrial fibrillation [Unknown]

NARRATIVE: CASE EVENT DATE: 20161115
